FAERS Safety Report 15215874 (Version 1)
Quarter: 2018Q3

REPORT INFORMATION
  Report Type: Spontaneous
  Country: GB (occurrence: GB)
  Receive Date: 20180730
  Receipt Date: 20180730
  Transmission Date: 20181010
  Serious: No
  Sender: FDA-Public Use
  Company Number: GB-B. BRAUN MEDICAL INC.-2052945

PATIENT
  Age: 62 Year
  Sex: Male
  Weight: 67.8 kg

DRUGS (20)
  1. CHLORPHENAMINE [Concomitant]
     Active Substance: CHLORPHENIRAMINE MALEATE
  2. ATORVASTATIN [Concomitant]
     Active Substance: ATORVASTATIN
  3. INCRUSE ELLIPTA [Concomitant]
     Active Substance: UMECLIDINIUM BROMIDE
  4. ONDANSETRON [Concomitant]
     Active Substance: ONDANSETRON
  5. SALBUTAMOL [Concomitant]
     Active Substance: ALBUTEROL
  6. ISOSORBIDE MONONITRATE. [Concomitant]
     Active Substance: ISOSORBIDE MONONITRATE
  7. RELVAR ELLIPTA [Concomitant]
     Active Substance: FLUTICASONE FUROATE\VILANTEROL TRIFENATATE
  8. GABAPENTIN. [Concomitant]
     Active Substance: GABAPENTIN
  9. MESALAZINE [Concomitant]
     Active Substance: MESALAMINE
  10. PREDNISOLONE. [Concomitant]
     Active Substance: PREDNISOLONE
  11. GENTAMICIN SULFATE. [Suspect]
     Active Substance: GENTAMICIN SULFATE
     Route: 042
     Dates: start: 20180701, end: 20180705
  12. AMITRIPTYLINE [Concomitant]
     Active Substance: AMITRIPTYLINE
  13. GLYCERYL TRINITRATE [Concomitant]
     Active Substance: NITROGLYCERIN
  14. METFORMIN [Concomitant]
     Active Substance: METFORMIN HYDROCHLORIDE
  15. PARACETAMOL [Concomitant]
     Active Substance: ACETAMINOPHEN
  16. FORCEVAL [Concomitant]
     Active Substance: FOLIC ACID\IRON\MINERALS\VITAMINS
  17. OMEPRAZOLE SODIUM [Concomitant]
     Active Substance: OMEPRAZOLE SODIUM
  18. METRONIDAZOLE INJECTION USP (5 MG/ML) IN PAB? PLASTIC CONTAINER (NDA 0 [Suspect]
     Active Substance: METRONIDAZOLE
     Indication: ABDOMINAL ABSCESS
     Route: 042
     Dates: start: 20180701, end: 20180705
  19. PANCREATIN PORCINE [Concomitant]
  20. OXYCODONE [Concomitant]
     Active Substance: OXYCODONE

REACTIONS (2)
  - Tongue erythema [Unknown]
  - Glossodynia [Not Recovered/Not Resolved]

NARRATIVE: CASE EVENT DATE: 20180705
